FAERS Safety Report 24656791 (Version 1)
Quarter: 2024Q4

REPORT INFORMATION
  Report Type: Spontaneous
  Country: US (occurrence: US)
  Receive Date: 20241125
  Receipt Date: 20241125
  Transmission Date: 20250114
  Serious: No
  Sender: ROCHE
  Company Number: US-ROCHE-10000138732

PATIENT
  Age: 59 Year
  Sex: Female

DRUGS (2)
  1. CELLCEPT [Suspect]
     Active Substance: MYCOPHENOLATE MOFETIL
     Indication: Product used for unknown indication
     Route: 065
     Dates: start: 202408
  2. OFEV [Concomitant]
     Active Substance: NINTEDANIB

REACTIONS (3)
  - Nausea [Unknown]
  - Frequent bowel movements [Unknown]
  - Diarrhoea [Unknown]
